FAERS Safety Report 20050124 (Version 2)
Quarter: 2021Q4

REPORT INFORMATION
  Report Type: Spontaneous
  Country: DE (occurrence: DE)
  Receive Date: 20211109
  Receipt Date: 20211119
  Transmission Date: 20220303
  Serious: Yes (Other)
  Sender: FDA-Public Use
  Company Number: DE-MEDAC-2021001532

PATIENT
  Age: 79 Year
  Sex: Male

DRUGS (2)
  1. LEVOFLOXACIN [Suspect]
     Active Substance: LEVOFLOXACIN
     Indication: Product used for unknown indication
     Dosage: AFTER SECOND DAY OF ADMINISTRATION PATIENT HAD WATER IN THE FEET)
  2. BCG VACCINE [Suspect]
     Active Substance: BCG VACCINE
     Indication: Bladder cancer
     Dosage: THE FIRST THREE ADMINISTRATIONS WERE TOLERATED WELL
     Route: 043

REACTIONS (5)
  - Bacterial test positive [Recovered/Resolved]
  - Oedema peripheral [Recovered/Resolved]
  - Mobility decreased [Recovered/Resolved]
  - Pain [Recovered/Resolved]
  - Malaise [Recovered/Resolved]

NARRATIVE: CASE EVENT DATE: 20210101
